FAERS Safety Report 13212514 (Version 1)
Quarter: 2017Q1

REPORT INFORMATION
  Report Type: Spontaneous
  Country: US (occurrence: US)
  Receive Date: 20170210
  Receipt Date: 20170210
  Transmission Date: 20170428
  Serious: No
  Sender: FDA-Public Use
  Company Number: US-ASTRAZENECA-2017SE12444

PATIENT
  Sex: Male

DRUGS (1)
  1. BYDUREON [Suspect]
     Active Substance: EXENATIDE
     Indication: TYPE 2 DIABETES MELLITUS
     Route: 065

REACTIONS (6)
  - Dizziness [Unknown]
  - Injection site haemorrhage [Unknown]
  - Injection site warmth [Unknown]
  - Injection site pruritus [Unknown]
  - Dyspnoea [Unknown]
  - Injection site bruising [Unknown]
